FAERS Safety Report 21755166 (Version 2)
Quarter: 2022Q4

REPORT INFORMATION
  Report Type: Report from Study
  Country: US (occurrence: US)
  Receive Date: 20221220
  Receipt Date: 20221227
  Transmission Date: 20230113
  Serious: No
  Sender: FDA-Public Use
  Company Number: US-002147023-NVSC2022US291626

PATIENT
  Age: 36 Year
  Sex: Female

DRUGS (1)
  1. KESIMPTA [Suspect]
     Active Substance: OFATUMUMAB
     Indication: Relapsing multiple sclerosis
     Dosage: 20 MG, QW
     Route: 058
     Dates: start: 20221203

REACTIONS (4)
  - Headache [Recovered/Resolved]
  - Pain [Unknown]
  - Injection site pain [Recovered/Resolved]
  - Injection site bruising [Recovered/Resolved]

NARRATIVE: CASE EVENT DATE: 20221203
